FAERS Safety Report 4730746-7 (Version None)
Quarter: 2005Q3

REPORT INFORMATION
  Report Type: 
  Country: None (occurrence: None)
  Receive Date: 20050725
  Receipt Date: 20050318
  Transmission Date: 20060218
  Serious: No
  Sender: FDA-Public Use
  Company Number: USA050393573

PATIENT
  Age: 60 Year
  Sex: Female
  Weight: 50 kg

DRUGS (1)
  1. STRATTERA [Suspect]
     Indication: ATTENTION DEFICIT/HYPERACTIVITY DISORDER
     Dosage: 80 MG
     Dates: start: 20041101

REACTIONS (7)
  - ACNE [None]
  - DIZZINESS [None]
  - INFLUENZA LIKE ILLNESS [None]
  - MIDDLE EAR EFFUSION [None]
  - NIGHTMARE [None]
  - SENSORY DISTURBANCE [None]
  - TINNITUS [None]
